FAERS Safety Report 8211795-3 (Version None)
Quarter: 2012Q1

REPORT INFORMATION
  Report Type: 
  Country: None (occurrence: None)
  Receive Date: 20120315
  Receipt Date: 20120307
  Transmission Date: 20120608
  Serious: No
  Sender: FDA-Public Use
  Company Number: JP-EISAI INC-E3810-05359-SPO-JP

PATIENT
  Age: 37 Year
  Sex: Female

DRUGS (2)
  1. RABEPRAZOLE SODIUM [Suspect]
     Route: 048
     Dates: start: 20120214, end: 20120228
  2. KRESTIN [Concomitant]
     Indication: GASTRIC CANCER
     Route: 048

REACTIONS (1)
  - LACTATION DISORDER [None]
